FAERS Safety Report 18227524 (Version 3)
Quarter: 2020Q4

REPORT INFORMATION
  Report Type: Spontaneous
  Country: IT (occurrence: IT)
  Receive Date: 20200903
  Receipt Date: 20201009
  Transmission Date: 20210113
  Serious: Yes (Hospitalization, Other)
  Sender: FDA-Public Use
  Company Number: IT-PFIZER INC-2020331151

PATIENT
  Age: 60 Year
  Sex: Female

DRUGS (4)
  1. METHOTREXATE SODIUM. [Suspect]
     Active Substance: METHOTREXATE SODIUM
     Indication: IMMUNISATION
     Dosage: 12.5 G, WEEKLY
  2. RITUXIMAB. [Suspect]
     Active Substance: RITUXIMAB
     Indication: IMMUNOSUPPRESSION
     Dosage: 1 G, (LATEST DOSE BY FEB/2020, 2 WEEKS APART WAS EMPLOYED)
     Dates: start: 2017
  3. PREDNISONE. [Suspect]
     Active Substance: PREDNISONE
     Indication: IMMUNOSUPPRESSION
     Dosage: 10 MG, 1X/DAY
     Route: 065
  4. TOCILIZUMAB. [Suspect]
     Active Substance: TOCILIZUMAB
     Indication: COVID-19
     Dosage: 800 MG
     Route: 042

REACTIONS (6)
  - Myalgia [Unknown]
  - Intentional product use issue [Unknown]
  - Blood creatine phosphokinase increased [Unknown]
  - COVID-19 [Recovered/Resolved]
  - Off label use [Unknown]
  - Fatigue [Unknown]

NARRATIVE: CASE EVENT DATE: 202001
